FAERS Safety Report 4836615-6 (Version None)
Quarter: 2005Q4

REPORT INFORMATION
  Report Type: 
  Country: None (occurrence: None)
  Receive Date: 20051121
  Receipt Date: 20051108
  Transmission Date: 20060501
  Serious: Yes (Death, Life-Threatening, Hospitalization)
  Sender: FDA-Public Use
  Company Number: HQWYE867006OCT05

PATIENT
  Age: 68 Year
  Sex: Female
  Weight: 88.9 kg

DRUGS (16)
  1. MYLOTARG [Suspect]
     Indication: ACUTE MYELOID LEUKAEMIA
     Dosage: 18 MG 1X PER 1 DAY, INTRAVENOUS
     Route: 042
     Dates: start: 20050922, end: 20050922
  2. BACTRIM [Concomitant]
  3. CIPRO [Concomitant]
  4. COMPAZINE [Concomitant]
  5. ACYCLOVIR [Concomitant]
  6. FLUCONAZOLE [Concomitant]
  7. ALLOPURINOL [Concomitant]
  8. OXYCONTIN [Concomitant]
  9. OXYCODONE (OXYCODONE) [Concomitant]
  10. COMBIVENT [Concomitant]
  11. MOMETASONE (MOMETASONE) [Concomitant]
  12. TOPROL-XL [Concomitant]
  13. SYNTHROID [Concomitant]
  14. SPIRONOLACTONE [Concomitant]
  15. LASIX [Concomitant]
  16. LISINOPRIL [Concomitant]

REACTIONS (10)
  - ALANINE AMINOTRANSFERASE INCREASED [None]
  - ASPARTATE AMINOTRANSFERASE INCREASED [None]
  - DIARRHOEA [None]
  - GENERAL PHYSICAL HEALTH DETERIORATION [None]
  - HYPOTENSION [None]
  - HYPOVOLAEMIA [None]
  - RENAL FAILURE ACUTE [None]
  - RENAL TUBULAR NECROSIS [None]
  - RENAL VEIN THROMBOSIS [None]
  - VOMITING [None]
